FAERS Safety Report 10711842 (Version 5)
Quarter: 2015Q1

REPORT INFORMATION
  Report Type: Spontaneous
  Country: NL (occurrence: NL)
  Receive Date: 20150114
  Receipt Date: 20150324
  Transmission Date: 20150721
  Serious: Yes (Hospitalization, Other)
  Sender: FDA-Public Use
  Company Number: NL-PFIZER INC-2014289840

PATIENT
  Age: 67 Year
  Sex: Male
  Weight: 94 kg

DRUGS (5)
  1. ATORVASTATINE PFIZER [Suspect]
     Active Substance: ATORVASTATIN
     Dosage: 20 MG, UNK
  2. TAMSULOSIN [Concomitant]
     Active Substance: TAMSULOSIN
     Indication: PROPHYLAXIS
     Dosage: 1 DF, 1X/DAY
     Route: 048
     Dates: start: 1997
  3. ATENOLOL. [Concomitant]
     Active Substance: ATENOLOL
     Indication: HYPERTENSION
     Dosage: 1 DF, 1X/DAY
     Route: 048
     Dates: start: 1997
  4. ATORVASTATINE PFIZER [Suspect]
     Active Substance: ATORVASTATIN
     Dosage: 10 MG, UNK
     Dates: start: 20140729
  5. ACETYLSALICYLZUUR DUMEX CARDIO [Concomitant]
     Indication: ANTICOAGULANT THERAPY
     Dosage: 1 DF, 1X/DAY
     Route: 048
     Dates: start: 1997

REACTIONS (4)
  - Fatigue [Unknown]
  - Malaise [Unknown]
  - Drug effect incomplete [Unknown]
  - Coronary artery disease [Unknown]

NARRATIVE: CASE EVENT DATE: 20140901
